FAERS Safety Report 14045249 (Version 3)
Quarter: 2017Q4

REPORT INFORMATION
  Report Type: Report from Study
  Country: None (occurrence: US)
  Receive Date: 20171005
  Receipt Date: 20171126
  Transmission Date: 20180321
  Serious: Yes (Hospitalization, Other)
  Sender: FDA-Public Use
  Company Number: US-ABBVIE-17K-163-2118884-00

PATIENT
  Age: 89 Year
  Sex: Male
  Weight: 83.99 kg

DRUGS (2)
  1. HUMIRA [Suspect]
     Active Substance: ADALIMUMAB
     Indication: RHEUMATOID ARTHRITIS
     Route: 058
  2. HUMIRA [Suspect]
     Active Substance: ADALIMUMAB
     Indication: PSORIASIS

REACTIONS (5)
  - Foot fracture [Recovering/Resolving]
  - Drug effect incomplete [Unknown]
  - Injection site pain [Unknown]
  - Macular degeneration [Unknown]
  - Ligament sprain [Unknown]

NARRATIVE: CASE EVENT DATE: 2017
